FAERS Safety Report 5878029-6 (Version None)
Quarter: 2008Q3

REPORT INFORMATION
  Report Type: 
  Country: None (occurrence: None)
  Receive Date: 20080911
  Receipt Date: 20080902
  Transmission Date: 20090109
  Serious: Yes (Death, Hospitalization)
  Sender: FDA-Public Use
  Company Number: CH-JNJFOC-20080900320

PATIENT
  Age: 66 Year
  Sex: Male

DRUGS (13)
  1. TAVANIC [Suspect]
     Indication: PNEUMONIA
     Dosage: 1000MG SOLUTION FOR INFUSION
     Route: 042
  2. SORTIS [Suspect]
     Indication: MYOCARDIAL INFARCTION
     Route: 048
  3. KLACID [Suspect]
     Indication: DRUG USE FOR UNKNOWN INDICATION
     Route: 042
  4. CEDUR [Concomitant]
     Route: 048
  5. ADALAT [Concomitant]
     Route: 048
  6. ASPIRIN [Concomitant]
     Route: 048
  7. LASIX [Concomitant]
     Route: 048
  8. COVERSUM [Concomitant]
     Route: 048
  9. LORASIFAR [Concomitant]
     Route: 048
  10. VOLTAREN [Concomitant]
     Route: 048
  11. ZALDIAR [Concomitant]
     Dosage: 325/37.5 MG EVERY DAY
     Route: 048
  12. SOLU-MEDROL [Concomitant]
     Route: 042
  13. MERONEM [Concomitant]
     Route: 042

REACTIONS (9)
  - FALL [None]
  - GASTROINTESTINAL HAEMORRHAGE [None]
  - LEFT VENTRICULAR FAILURE [None]
  - MULTI-ORGAN FAILURE [None]
  - MYOCARDIAL INFARCTION [None]
  - RENAL FAILURE [None]
  - RESPIRATORY DISTRESS [None]
  - RHABDOMYOLYSIS [None]
  - SEPTIC SHOCK [None]
